FAERS Safety Report 6695181-3 (Version None)
Quarter: 2010Q2

REPORT INFORMATION
  Report Type: 
  Country: None (occurrence: None)
  Receive Date: 20100423
  Receipt Date: 20100413
  Transmission Date: 20101027
  Serious: Yes (Hospitalization)
  Sender: FDA-Public Use
  Company Number: SE-WATSON-2010-05022

PATIENT
  Age: 76 Year
  Sex: Female

DRUGS (2)
  1. FLUOROURACIL [Suspect]
     Indication: COLON CANCER
     Dosage: 500 MG/M2, 1/WEEK
     Route: 040
  2. CALCIUM FOLINATE [Concomitant]
     Indication: COLON CANCER
     Dosage: 20 MG/M2, 1/WEEK
     Route: 040

REACTIONS (5)
  - DIARRHOEA [None]
  - DRUG TOXICITY [None]
  - LACRIMATION INCREASED [None]
  - MUCOSAL INFLAMMATION [None]
  - STOMATITIS [None]
